FAERS Safety Report 8943560 (Version 6)
Quarter: 2013Q1

REPORT INFORMATION
  Report Type: Spontaneous
  Country: DK (occurrence: DK)
  Receive Date: 20121204
  Receipt Date: 20130217
  Transmission Date: 20140127
  Serious: Yes (Death, Other)
  Sender: FDA-Public Use
  Company Number: DK-TEVA-371455ISR

PATIENT
  Sex: Female

DRUGS (10)
  1. VINORELBINE [Suspect]
     Indication: PRODUCT USED FOR UNKNOWN INDICATION
     Route: 065
  2. PACLITAXEL [Suspect]
     Indication: PRODUCT USED FOR UNKNOWN INDICATION
     Route: 065
  3. LETROZOLE [Suspect]
     Indication: PRODUCT USED FOR UNKNOWN INDICATION
     Route: 065
  4. HERCEPTIN [Suspect]
     Indication: BREAST CANCER
     Route: 065
  5. XELODA [Suspect]
     Indication: PRODUCT USED FOR UNKNOWN INDICATION
     Route: 065
  6. HALAVEN [Suspect]
     Indication: PRODUCT USED FOR UNKNOWN INDICATION
     Route: 065
  7. LAPATINIB [Suspect]
     Indication: PRODUCT USED FOR UNKNOWN INDICATION
     Route: 065
  8. EPIRUBICIN [Concomitant]
  9. CYCLOPHOSPHAMIDE [Concomitant]
  10. TAXOTERE [Concomitant]

REACTIONS (7)
  - Malignant neoplasm progression [Fatal]
  - Metastases to bone [Fatal]
  - Sensory disturbance [Unknown]
  - Superior vena cava syndrome [Unknown]
  - Tenderness [Unknown]
  - Fracture [Unknown]
  - Lymphadenopathy [Unknown]
